FAERS Safety Report 8180717-6 (Version None)
Quarter: 2012Q1

REPORT INFORMATION
  Report Type: 
  Country: None (occurrence: None)
  Receive Date: 20120302
  Receipt Date: 20120216
  Transmission Date: 20120608
  Serious: Yes (Other)
  Sender: FDA-Public Use
  Company Number: CN-WATSON-2012-03109

PATIENT
  Age: 48 Year
  Sex: Female

DRUGS (1)
  1. BACLOFEN [Suspect]
     Indication: TRISMUS
     Dosage: 150 MG, DAILY
     Route: 065

REACTIONS (4)
  - URINARY INCONTINENCE [None]
  - DELIRIUM [None]
  - LOGORRHOEA [None]
  - ALTERED STATE OF CONSCIOUSNESS [None]
